FAERS Safety Report 5309206-0 (Version None)
Quarter: 2007Q2

REPORT INFORMATION
  Report Type: 
  Country: None (occurrence: None)
  Receive Date: 20070423
  Receipt Date: 20070410
  Transmission Date: 20071010
  Serious: Yes (Other)
  Sender: FDA-Public Use
  Company Number: 2007BI004737

PATIENT
  Age: 42 Year
  Sex: Female

DRUGS (1)
  1. AVONEX [Suspect]
     Indication: MULTIPLE SCLEROSIS
     Dosage: 30 UG;QW;IM
     Route: 030
     Dates: start: 20060901

REACTIONS (10)
  - ABASIA [None]
  - BLOOD TEST ABNORMAL [None]
  - CEREBRAL CYST [None]
  - MEMORY IMPAIRMENT [None]
  - MUSCLE SPASMS [None]
  - NAUSEA [None]
  - PAIN [None]
  - PITUITARY TUMOUR BENIGN [None]
  - TUMOUR MARKER INCREASED [None]
  - URINE ABNORMALITY [None]
